FAERS Safety Report 15449575 (Version 2)
Quarter: 2018Q4

REPORT INFORMATION
  Report Type: Spontaneous
  Country: US (occurrence: US)
  Receive Date: 20181001
  Receipt Date: 20181025
  Transmission Date: 20190204
  Serious: Yes (Death, Other)
  Sender: FDA-Public Use
  Company Number: US-B.I. PHARMACEUTICALS,INC./RIDGEFIELD-2018-BI-048527

PATIENT
  Age: 87 Year
  Sex: Male

DRUGS (3)
  1. TRADJENTA [Suspect]
     Active Substance: LINAGLIPTIN
     Indication: TYPE 2 DIABETES MELLITUS
     Route: 048
     Dates: start: 2014
  2. ALDACTONE [Concomitant]
     Active Substance: SPIRONOLACTONE
     Indication: BLOOD PRESSURE ABNORMAL
     Route: 065
  3. TRADJENTA [Suspect]
     Active Substance: LINAGLIPTIN
     Route: 048
     Dates: start: 201801

REACTIONS (2)
  - Pemphigoid [Unknown]
  - Sepsis [Fatal]
